FAERS Safety Report 15007956 (Version 4)
Quarter: 2018Q3

REPORT INFORMATION
  Report Type: Spontaneous
  Country: ES (occurrence: ES)
  Receive Date: 20180613
  Receipt Date: 20180727
  Transmission Date: 20181010
  Serious: Yes (Other)
  Sender: FDA-Public Use
  Company Number: PHHY2018ES009725

PATIENT
  Age: 23 Year
  Sex: Male

DRUGS (20)
  1. RITUXIMAB. [Suspect]
     Active Substance: RITUXIMAB
     Indication: PRODUCT USED FOR UNKNOWN INDICATION
     Dosage: UNK
     Route: 065
  2. METHOTREXATE. [Suspect]
     Active Substance: METHOTREXATE
     Indication: ACUTE LYMPHOCYTIC LEUKAEMIA RECURRENT
     Dosage: UNK (FIRST CYCLE)
     Route: 065
     Dates: start: 20140415
  3. CYTARABINE. [Suspect]
     Active Substance: CYTARABINE
     Indication: ACUTE LYMPHOCYTIC LEUKAEMIA RECURRENT
     Dosage: UNK (FIRST CYCLE)
     Route: 065
     Dates: start: 20140415
  4. PONATINIB [Suspect]
     Active Substance: PONATINIB
     Dosage: UNK (SECOND CYCLE)
     Route: 065
  5. GENOXAL [Suspect]
     Active Substance: CYCLOPHOSPHAMIDE
     Indication: ACUTE LYMPHOCYTIC LEUKAEMIA RECURRENT
     Dosage: UNK (FIRST CYCLE)
     Route: 065
     Dates: start: 20140415
  6. ICLUSIG [Suspect]
     Active Substance: PONATINIB
     Indication: ACUTE LYMPHOCYTIC LEUKAEMIA RECURRENT
     Dosage: 45 MG, QD (FIRST CYCLE)
     Route: 048
     Dates: start: 20140415
  7. CYCLOPHOSPHAMIDE. [Suspect]
     Active Substance: CYCLOPHOSPHAMIDE
     Indication: ACUTE LYMPHOCYTIC LEUKAEMIA RECURRENT
     Dosage: UNK
     Route: 065
  8. DOXORUBICIN HCL [Suspect]
     Active Substance: DOXORUBICIN HYDROCHLORIDE
     Indication: ACUTE LYMPHOCYTIC LEUKAEMIA RECURRENT
     Dosage: UNK (FIRST CYCLE)
     Route: 065
     Dates: start: 20140415
  9. METHOTREXATE. [Suspect]
     Active Substance: METHOTREXATE
     Dosage: UNK (SECOND CYCLE)
     Route: 065
     Dates: start: 2014
  10. FLUDARABINE [Suspect]
     Active Substance: FLUDARABINE PHOSPHATE
     Indication: ACUTE LYMPHOCYTIC LEUKAEMIA RECURRENT
     Dosage: UNK (FIRST CYCLE)
     Route: 065
     Dates: start: 20140928
  11. CYTARABINE. [Suspect]
     Active Substance: CYTARABINE
     Dosage: UNK (SECOND CYCLE)
     Route: 065
     Dates: start: 2014
  12. DOXORUBICIN HCL [Suspect]
     Active Substance: DOXORUBICIN HYDROCHLORIDE
     Dosage: UNK (SECOND CYCLE)
     Route: 065
     Dates: start: 2014
  13. THIOTEPA. [Suspect]
     Active Substance: THIOTEPA
     Indication: ACUTE LYMPHOCYTIC LEUKAEMIA RECURRENT
     Dosage: 45 MG, QD (4 CYCLES)
     Route: 048
     Dates: start: 20140928
  14. VINCRISTINE SULFATE. [Suspect]
     Active Substance: VINCRISTINE SULFATE
     Dosage: UNK (SECOND CYCLE)
     Route: 065
     Dates: start: 2014
  15. PONATINIB [Suspect]
     Active Substance: PONATINIB
     Indication: PRODUCT USED FOR UNKNOWN INDICATION
     Dosage: UNK (AFTER HEMATOPOIETIC STEM CELL TRANSPLANTATION)
     Route: 065
  16. VINCRISTINE SULFATE. [Suspect]
     Active Substance: VINCRISTINE SULFATE
     Indication: ACUTE LYMPHOCYTIC LEUKAEMIA RECURRENT
     Dosage: UNK (FIRST CYCLE)
     Route: 065
     Dates: start: 20140415
  17. DEXAMETHASONE. [Suspect]
     Active Substance: DEXAMETHASONE
     Dosage: UNK (SECOND CYCLE)
     Route: 065
     Dates: start: 2014
  18. BUSULPHAN [Suspect]
     Active Substance: BUSULFAN
     Indication: ACUTE LYMPHOCYTIC LEUKAEMIA RECURRENT
     Dosage: UNK
     Route: 065
     Dates: start: 20140928
  19. DEXAMETHASONE. [Suspect]
     Active Substance: DEXAMETHASONE
     Indication: ACUTE LYMPHOCYTIC LEUKAEMIA RECURRENT
     Dosage: UNK (FIRST CYCLE)
     Route: 065
     Dates: start: 20140415
  20. GENOXAL [Suspect]
     Active Substance: CYCLOPHOSPHAMIDE
     Dosage: UNK (SECOND CYCLE)
     Route: 065
     Dates: start: 2014

REACTIONS (6)
  - Viral haemorrhagic cystitis [Unknown]
  - Epstein-Barr virus infection [Recovered/Resolved]
  - Autoimmune lymphoproliferative syndrome [Unknown]
  - Post transplant lymphoproliferative disorder [Recovered/Resolved]
  - Acute lymphocytic leukaemia recurrent [Unknown]
  - Cytomegalovirus infection [Unknown]

NARRATIVE: CASE EVENT DATE: 20141015
